FAERS Safety Report 4590918-1 (Version None)
Quarter: 2005Q1

REPORT INFORMATION
  Report Type: 
  Country: None (occurrence: None)
  Receive Date: 20050225
  Receipt Date: 20050215
  Transmission Date: 20050727
  Serious: Yes (Other)
  Sender: FDA-Public Use
  Company Number: US-JNJFOC-20041005113

PATIENT
  Sex: Female
  Weight: 53.52 kg

DRUGS (14)
  1. REMICADE [Suspect]
     Route: 042
  2. REMICADE [Suspect]
     Indication: CROHN'S DISEASE
     Route: 042
  3. PREDNISONE [Concomitant]
  4. LEVAQUIN [Concomitant]
  5. TOPORAL [Concomitant]
  6. IMURAN [Concomitant]
  7. ACTINEL [Concomitant]
  8. ZANTAC [Concomitant]
  9. LEXAPRO [Concomitant]
  10. FLEXERIL [Concomitant]
  11. ZYRTEC [Concomitant]
  12. CELEBREX [Concomitant]
  13. DARVOCET [Concomitant]
  14. DARVOCET [Concomitant]

REACTIONS (3)
  - ATOPY [None]
  - IMMUNE SYSTEM DISORDER [None]
  - KERATITIS SCLEROSING [None]
